FAERS Safety Report 19591861 (Version 1)
Quarter: 2021Q3

REPORT INFORMATION
  Report Type: Other
  Country: IT (occurrence: IT)
  Receive Date: 20210721
  Receipt Date: 20210721
  Transmission Date: 20211014
  Serious: Yes (Life-Threatening, Hospitalization)
  Sender: FDA-Public Use
  Company Number: IT-ROCHE-2788660

PATIENT
  Age: 65 Year
  Sex: Female

DRUGS (2)
  1. OBINUTUZUMAB. [Suspect]
     Active Substance: OBINUTUZUMAB
     Indication: FOLLICULAR LYMPHOMA
     Dosage: ON DAY 1, 8, 15 OF CYCLE 1 AN DAY 1 OF CYCLES 2?6 OR 2?8.?MAINTENANCE TREATMENT OF OBINUTUZUMAB WAS
     Route: 042
     Dates: start: 20190717
  2. TOCILIZUMAB. [Suspect]
     Active Substance: TOCILIZUMAB
     Indication: COVID-19 PNEUMONIA
     Route: 058

REACTIONS (2)
  - COVID-19 pneumonia [Not Recovered/Not Resolved]
  - Off label use [Unknown]

NARRATIVE: CASE EVENT DATE: 20210223
